FAERS Safety Report 15937321 (Version 1)
Quarter: 2019Q1

REPORT INFORMATION
  Report Type: Spontaneous
  Country: US (occurrence: US)
  Receive Date: 20190208
  Receipt Date: 20190208
  Transmission Date: 20190417
  Serious: Yes (Other)
  Sender: FDA-Public Use
  Company Number: None

PATIENT
  Age: 56 Year
  Sex: Female
  Weight: 72 kg

DRUGS (1)
  1. VENLAFAXINE HCL ER 37.5 MG CAP/VENLAFAXINE HCL CAP SR TEVA PHARMACUTICALS [Suspect]
     Active Substance: VENLAFAXINE HYDROCHLORIDE
     Indication: ANXIOLYTIC THERAPY
     Dosage: ?          QUANTITY:1 CAPSULE(S);?
     Route: 048
     Dates: start: 20190130

REACTIONS (7)
  - Headache [None]
  - Emotional disorder [None]
  - Drug ineffective [None]
  - Product substitution issue [None]
  - Irritability [None]
  - Anxiety [None]
  - Anger [None]

NARRATIVE: CASE EVENT DATE: 20190207
